FAERS Safety Report 5323304-7 (Version None)
Quarter: 2007Q2

REPORT INFORMATION
  Report Type: 
  Country: None (occurrence: None)
  Receive Date: 20070221
  Receipt Date: 20061213
  Transmission Date: 20071010
  Serious: Yes (Other)
  Sender: FDA-Public Use
  Company Number: BDI-008949

PATIENT
  Age: 41 Year
  Sex: Male
  Weight: 83.64 kg

DRUGS (6)
  1. ISOVUE-370 [Suspect]
     Indication: ACUTE MYOCARDIAL INFARCTION
     Dosage: 178 ML ONCE IC
     Dates: start: 20061212, end: 20061212
  2. ISOVUE-370 [Suspect]
     Indication: ARTERIOGRAM CORONARY
     Dosage: 178 ML ONCE IC
     Dates: start: 20061212, end: 20061212
  3. ISOVUE-370 [Suspect]
     Indication: CATHETERISATION CARDIAC
     Dosage: 178 ML ONCE IC
     Dates: start: 20061212, end: 20061212
  4. VERSED [Concomitant]
  5. FENTANYL [Concomitant]
  6. HEPARIN [Concomitant]

REACTIONS (4)
  - BACK PAIN [None]
  - CHILLS [None]
  - HEART RATE INCREASED [None]
  - TREMOR [None]
